FAERS Safety Report 23703124 (Version 3)
Quarter: 2024Q3

REPORT INFORMATION
  Report Type: Spontaneous
  Country: GB (occurrence: GB)
  Receive Date: 20240403
  Receipt Date: 20240702
  Transmission Date: 20241016
  Serious: Yes (Death, Other)
  Sender: INCYTE
  Company Number: GB-002147023-NVSC2024GB062077

PATIENT

DRUGS (3)
  1. RUXOLITINIB [Suspect]
     Active Substance: RUXOLITINIB
     Indication: Myelofibrosis
     Dosage: 10 MG, BID
     Route: 048
     Dates: start: 202006
  2. RUXOLITINIB [Suspect]
     Active Substance: RUXOLITINIB
     Dosage: 5 MG, BID
     Route: 065
     Dates: start: 202009, end: 202312
  3. METHYLPREDNISOLONE [Suspect]
     Active Substance: METHYLPREDNISOLONE
     Indication: Product used for unknown indication
     Dosage: UNK, (5 DAYS COURSE OF METHYL PREDNISOLONE COMPLETED)
     Route: 065

REACTIONS (11)
  - Clumsiness [Unknown]
  - Cognitive disorder [Unknown]
  - JC virus infection [Unknown]
  - Mycobacterium avium complex infection [Unknown]
  - Personality change [Unknown]
  - Phaeochromocytoma [Unknown]
  - Progressive multifocal leukoencephalopathy [Fatal]
  - Iron overload [Unknown]
  - Anaemia [Unknown]
  - Alanine aminotransferase increased [Unknown]
  - Overchelation [Unknown]

NARRATIVE: CASE EVENT DATE: 20210101
